FAERS Safety Report 18606739 (Version 4)
Quarter: 2022Q2

REPORT INFORMATION
  Report Type: Spontaneous
  Country: CA (occurrence: CA)
  Receive Date: 20201211
  Receipt Date: 20220613
  Transmission Date: 20220721
  Serious: Yes (Hospitalization)
  Sender: FDA-Public Use
  Company Number: CA-PFIZER INC-2020086808

PATIENT
  Age: 62 Year
  Sex: Female

DRUGS (12)
  1. XELJANZ XR [Suspect]
     Active Substance: TOFACITINIB CITRATE
     Indication: Rheumatoid arthritis
     Dosage: 11 MG, 1X/DAY
     Route: 048
     Dates: start: 20200425, end: 2020
  2. XELJANZ XR [Suspect]
     Active Substance: TOFACITINIB CITRATE
     Dosage: 11 MG, 1X/DAY
     Route: 048
  3. NORVASC [Concomitant]
     Active Substance: AMLODIPINE BESYLATE
     Dosage: UNK
     Route: 065
  4. LIPITOR [Concomitant]
     Active Substance: ATORVASTATIN CALCIUM
     Dosage: UNK
     Route: 065
  5. PANTOPRAZOLE SODIUM [Concomitant]
     Active Substance: PANTOPRAZOLE SODIUM
     Dosage: UNK
     Route: 065
  6. IMURAN [Concomitant]
     Active Substance: AZATHIOPRINE
     Dosage: UNK
     Route: 065
     Dates: start: 2000
  7. MICARDIS [Concomitant]
     Active Substance: TELMISARTAN
     Dosage: UNK
     Route: 065
  8. GLUCOPHAGE [Concomitant]
     Active Substance: METFORMIN HYDROCHLORIDE
     Dosage: UNK
     Route: 065
  9. IRON [Concomitant]
     Active Substance: IRON
     Dosage: UNK
     Route: 065
  10. SYMBICORT [Concomitant]
     Active Substance: BUDESONIDE\FORMOTEROL FUMARATE DIHYDRATE
     Dosage: UNK
     Route: 065
  11. RIFAMPIN [Concomitant]
     Active Substance: RIFAMPIN
     Dosage: UNK
     Route: 065
  12. ATIVAN [Concomitant]
     Active Substance: LORAZEPAM
     Dosage: UNK
     Route: 065

REACTIONS (19)
  - Stevens-Johnson syndrome [Unknown]
  - Pseudomonas infection [Unknown]
  - Drug reaction with eosinophilia and systemic symptoms [Unknown]
  - Nausea [Unknown]
  - Headache [Unknown]
  - Synovial cyst [Unknown]
  - Muscle spasms [Unknown]
  - Anxiety [Unknown]
  - Undifferentiated connective tissue disease [Unknown]
  - C-reactive protein increased [Recovering/Resolving]
  - Blood glucose increased [Unknown]
  - Condition aggravated [Unknown]
  - Blood creatinine increased [Unknown]
  - Lipase increased [Unknown]
  - Red blood cell sedimentation rate increased [Unknown]
  - Haemoglobin decreased [Unknown]
  - Blood uric acid increased [Unknown]
  - Antinuclear antibody positive [Unknown]
  - Glomerular filtration rate decreased [Unknown]

NARRATIVE: CASE EVENT DATE: 20200101
